FAERS Safety Report 5389443-X (Version None)
Quarter: 2007Q3

REPORT INFORMATION
  Report Type: 
  Country: None (occurrence: None)
  Receive Date: 20070717
  Receipt Date: 20070710
  Transmission Date: 20080115
  Serious: Yes (Other)
  Sender: FDA-Public Use
  Company Number: US-GENENTECH-242350

PATIENT
  Sex: Female
  Weight: 33.56 kg

DRUGS (1)
  1. NUTROPIN AQ [Suspect]
     Indication: GROWTH HORMONE DEFICIENCY
     Dosage: 50 UNIT, 4/WEEK
     Route: 058
     Dates: start: 20020401

REACTIONS (2)
  - CONVULSION [None]
  - HEAT RASH [None]
